FAERS Safety Report 6101645-3 (Version None)
Quarter: 2009Q1

REPORT INFORMATION
  Report Type: 
  Country: None (occurrence: None)
  Receive Date: 20090304
  Receipt Date: 20090223
  Transmission Date: 20090719
  Serious: No
  Sender: FDA-Public Use
  Company Number: US-JNJFOC-20090205830

PATIENT
  Sex: Female
  Weight: 113.4 kg

DRUGS (25)
  1. FENTANYL TRANSDERMAL SYSTEM [Suspect]
     Indication: ARTHRALGIA
     Route: 062
  2. FENTANYL TRANSDERMAL SYSTEM [Suspect]
     Indication: ARTHRITIS
     Route: 062
  3. FENTANYL TRANSDERMAL SYSTEM [Suspect]
     Indication: FIBROMYALGIA
     Route: 062
  4. FENTANYL TRANSDERMAL SYSTEM [Suspect]
     Indication: DRUG USE FOR UNKNOWN INDICATION
     Route: 062
  5. TYLENOL W/ CODEINE NO. 3 [Concomitant]
     Indication: BREAKTHROUGH PAIN
     Dosage: VERY 4 TO 6 HOURS AS NEEDED.
  6. TYLENOL W/ CODEINE NO. 4 [Concomitant]
     Indication: BREAKTHROUGH PAIN
     Dosage: EVERY 6 HOURS AS NEEDED
  7. NYSTATIN [Concomitant]
     Indication: CANDIDIASIS
     Dosage: ORALLY SWISH AND SPIT
     Route: 048
  8. SYNTHROID [Concomitant]
     Indication: THYROID DISORDER
     Route: 048
  9. ALLEGRA [Concomitant]
     Indication: MULTIPLE ALLERGIES
     Route: 048
  10. DIGOXIN [Concomitant]
     Indication: CARDIAC DISORDER
     Route: 048
  11. ZOCOR [Concomitant]
     Indication: BLOOD CHOLESTEROL ABNORMAL
     Route: 048
  12. BYSTOLIC [Concomitant]
     Indication: BLOOD PRESSURE ABNORMAL
     Route: 048
  13. EFFEXOR XR [Concomitant]
     Route: 048
  14. EFFEXOR XR [Concomitant]
     Indication: DEPRESSION
     Route: 048
  15. ASPIRIN [Concomitant]
     Indication: ANTICOAGULANT THERAPY
     Route: 048
  16. LASIX [Concomitant]
     Indication: BLOOD PRESSURE ABNORMAL
     Route: 048
  17. KLOR-CON [Concomitant]
     Indication: MINERAL SUPPLEMENTATION
     Route: 048
  18. TRAZODONE HCL [Concomitant]
     Indication: DEPRESSION
     Route: 048
  19. TRAZODONE HCL [Concomitant]
     Indication: SLEEP DISORDER
     Route: 048
  20. TRAVATAN [Concomitant]
     Indication: GLAUCOMA
     Dosage: I DROP AT BED TIME IN THE LEFT EYE
     Route: 047
  21. COUMADIN [Concomitant]
     Dosage: ON ALTERNATE DAYS WITH 3 MG TABLET
     Route: 048
  22. COUMADIN [Concomitant]
     Indication: ANTICOAGULANT THERAPY
     Dosage: ON ALTERNATE DAYS WITH 4 MG TABLETS
     Route: 048
  23. TIGAN [Concomitant]
     Indication: NAUSEA
     Dosage: EVERY 8 HOURS AS NEEDED
     Route: 048
  24. PREVACID [Concomitant]
     Indication: GASTRIC DISORDER
     Route: 048
  25. ARTIFICIAL TEARS [Concomitant]
     Indication: EYE DISORDER
     Dosage: ONE DROP EACH EYE
     Route: 047

REACTIONS (5)
  - DRUG TOXICITY [None]
  - DYSPHONIA [None]
  - SINUS OPERATION [None]
  - TREATMENT NONCOMPLIANCE [None]
  - WITHDRAWAL SYNDROME [None]
